FAERS Safety Report 7760295-3 (Version None)
Quarter: 2011Q3

REPORT INFORMATION
  Report Type: 
  Country: None (occurrence: None)
  Receive Date: 20110919
  Receipt Date: 20110908
  Transmission Date: 20111222
  Serious: Yes (Hospitalization)
  Sender: FDA-Public Use
  Company Number: FR-PFIZER INC-2011200355

PATIENT
  Age: 79 Year
  Sex: Female

DRUGS (13)
  1. PAROXETINE HCL [Suspect]
     Dosage: 0.5 DF DAILY
     Route: 048
     Dates: start: 20110701
  2. ASPIRIN [Suspect]
     Dosage: 1 DF DAILY
     Route: 048
     Dates: start: 20100723
  3. BISOPROLOL FUMARATE [Suspect]
     Dosage: 1 DF DAILY
     Route: 048
     Dates: start: 20101024
  4. ACETAMINOPHEN [Suspect]
     Dosage: 500 MG, UNK
     Route: 048
     Dates: start: 20100224
  5. ESIDRIX [Suspect]
     Dosage: UNK
     Dates: start: 20100201, end: 20110420
  6. ATORVASTATIN CALCIUM [Suspect]
     Dosage: 10 MG, UNK
     Dates: start: 20100701, end: 20110424
  7. LEXOMIL [Suspect]
     Dosage: OCCASIONAL INTAKE
     Dates: start: 20100817, end: 20110427
  8. FORLAX [Suspect]
     Dosage: 1 DF DAILY
     Route: 048
     Dates: start: 20100224
  9. PAROXETINE HCL [Suspect]
     Dosage: 1 DF DAILY
     Route: 048
     Dates: start: 20100706, end: 20110701
  10. ZOLPIDEM TARTRATE [Suspect]
     Dosage: 1 DF DAILY
     Route: 048
     Dates: start: 20100224
  11. BONIVA [Suspect]
     Dosage: UNK
     Dates: start: 20100201, end: 20110520
  12. PANTOPRAZOLE SODIUM [Suspect]
     Dosage: 1 DF DAILY
     Route: 048
     Dates: start: 20100224
  13. EQUANIL [Suspect]
     Dosage: 250 MG, UNK
     Dates: start: 20101112, end: 20110513

REACTIONS (4)
  - ECZEMA [None]
  - PRURIGO [None]
  - EOSINOPHILIA [None]
  - PRURITUS [None]
